FAERS Safety Report 25840214 (Version 1)
Quarter: 2025Q3

REPORT INFORMATION
  Report Type: Report from Study
  Country: US (occurrence: US)
  Receive Date: 20250924
  Receipt Date: 20250924
  Transmission Date: 20251020
  Serious: Yes (Hospitalization)
  Sender: CHEPLAPHARM
  Company Number: US-CHEPLA-2025010998

PATIENT
  Age: 70 Year

DRUGS (6)
  1. TRETINOIN [Suspect]
     Active Substance: TRETINOIN
     Indication: Acute promyelocytic leukaemia
  2. TRETINOIN [Suspect]
     Active Substance: TRETINOIN
     Indication: Acute promyelocytic leukaemia
  3. HYDROXYUREA [Suspect]
     Active Substance: HYDROXYUREA
     Indication: Hyperleukocytosis
  4. PREDNISONE [Suspect]
     Active Substance: PREDNISONE
     Indication: Steroid therapy
  5. CYTARABINE [Suspect]
     Active Substance: CYTARABINE
     Indication: Hyperleukocytosis
  6. DEXAMETHASONE [Suspect]
     Active Substance: DEXAMETHASONE
     Indication: Steroid therapy

REACTIONS (2)
  - Differentiation syndrome [Unknown]
  - Off label use [Unknown]
